FAERS Safety Report 5675145-9 (Version None)
Quarter: 2008Q2

REPORT INFORMATION
  Report Type: 
  Country: None (occurrence: None)
  Receive Date: 20080303
  Receipt Date: 20070207
  Transmission Date: 20081010
  Serious: Yes (Hospitalization, Other)
  Sender: FDA-Public Use
  Company Number: RB-5190-2007

PATIENT

DRUGS (8)
  1. SUBOXONE [Suspect]
     Indication: DRUG DEPENDENCE
     Dosage: SEE IMAGE
     Route: 064
     Dates: start: 20060416, end: 20060522
  2. SUBOXONE [Suspect]
     Indication: DRUG DEPENDENCE
     Dosage: SEE IMAGE
     Route: 064
     Dates: start: 20060523, end: 20060717
  3. SUBOXONE [Suspect]
     Indication: DRUG DEPENDENCE
     Dosage: SEE IMAGE
     Route: 064
     Dates: start: 20061201, end: 20070101
  4. SUBOXONE [Suspect]
     Indication: DRUG DEPENDENCE
     Dosage: SEE IMAGE
     Route: 064
     Dates: start: 20060815, end: 20070114
  5. SUBUTEX [Suspect]
     Indication: DRUG DEPENDENCE
     Dosage: 24 MG QD TRANSPLACENTAL
     Route: 064
     Dates: start: 20060718, end: 20060814
  6. OPIUM TINCTURE [Concomitant]
  7. COCAINE [Concomitant]
  8. VALIUM [Concomitant]

REACTIONS (2)
  - DRUG EXPOSURE DURING PREGNANCY [None]
  - DRUG WITHDRAWAL SYNDROME NEONATAL [None]
